FAERS Safety Report 5598715-5 (Version None)
Quarter: 2008Q1

REPORT INFORMATION
  Report Type: 
  Country: None (occurrence: None)
  Receive Date: 20080122
  Receipt Date: 20080110
  Transmission Date: 20080703
  Serious: Yes (Life-Threatening)
  Sender: FDA-Public Use
  Company Number: NO-SANOFI-SYNTHELABO-A01200800278

PATIENT
  Sex: Female

DRUGS (9)
  1. PENTASA [Concomitant]
     Indication: COLITIS ULCERATIVE
     Dosage: UNK
     Route: 054
  2. SAROTEX [Concomitant]
     Indication: PAIN
     Dosage: UNK
     Route: 048
  3. SAROTEX [Concomitant]
     Indication: SLEEP DISORDER
     Dosage: UNK
     Route: 048
  4. PANTOPRAZOLE SODIUM [Concomitant]
     Indication: GASTRITIS
     Dosage: 40 MG
     Route: 048
  5. SUMATRIPTAN SUCCINATE [Concomitant]
     Indication: MIGRAINE
     Dosage: UNK
     Route: 065
  6. SIMVASTATIN [Concomitant]
     Indication: HYPERCHOLESTEROLAEMIA
     Dosage: 40 MG
     Route: 048
  7. ZOLPIDEM TARTRATE [Suspect]
     Indication: SLEEP DISORDER
     Dosage: 20 MG
     Route: 048
  8. PRED-CLYSMA [Concomitant]
     Indication: COLITIS ULCERATIVE
     Dosage: 31.25MG/125 ML
     Route: 054
  9. ZOMIG [Concomitant]
     Indication: MIGRAINE
     Dosage: UNK
     Route: 065

REACTIONS (2)
  - AMNESIA [None]
  - ROAD TRAFFIC ACCIDENT [None]
